FAERS Safety Report 5973178-6 (Version None)
Quarter: 2008Q4

REPORT INFORMATION
  Report Type: 
  Country: None (occurrence: None)
  Receive Date: 20081201
  Receipt Date: 20081117
  Transmission Date: 20090506
  Serious: Yes (Hospitalization)
  Sender: FDA-Public Use
  Company Number: PHHO2008NL13643

PATIENT
  Sex: Female
  Weight: 58 kg

DRUGS (6)
  1. STI571/CGP57148B T35717+CAPS [Suspect]
     Indication: CHRONIC MYELOID LEUKAEMIA
     Dosage: 300 MG
     Route: 048
     Dates: start: 20020304, end: 20081022
  2. THYRAX [Concomitant]
  3. VITAMIN D [Concomitant]
     Dosage: UNK
  4. FOSAMAX [Concomitant]
     Indication: OSTEOPOROSIS
  5. PANTOZOL [Concomitant]
     Indication: DYSPEPSIA
     Dosage: UNK
  6. HYDROCORTISONE [Concomitant]
     Dosage: UNK

REACTIONS (3)
  - GENERAL PHYSICAL HEALTH DETERIORATION [None]
  - PSEUDOMONAS INFECTION [None]
  - RENAL FAILURE [None]
